FAERS Safety Report 5319832-0 (Version None)
Quarter: 2007Q2

REPORT INFORMATION
  Report Type: 
  Country: None (occurrence: None)
  Receive Date: 20070509
  Receipt Date: 20070430
  Transmission Date: 20071010
  Serious: Yes (Hospitalization, Other)
  Sender: FDA-Public Use
  Company Number: PHNU2007DE00665

PATIENT
  Age: 75 Year
  Sex: Female

DRUGS (11)
  1. ZOMETA [Suspect]
     Indication: OSTEOPENIA
     Dosage: EVERY 8 WEEKS
     Dates: start: 20050426
  2. ACETYLSALICYLIC ACID SRT [Suspect]
     Route: 065
  3. ALKERAN [Suspect]
     Indication: PLASMACYTOMA
     Dates: start: 20060511
  4. ALKERAN [Suspect]
     Route: 065
     Dates: start: 20060524
  5. ALKERAN [Suspect]
     Route: 065
     Dates: start: 20050427
  6. ALKERAN [Suspect]
     Route: 065
     Dates: start: 20060427
  7. ALKERAN [Suspect]
     Route: 065
     Dates: start: 20060621
  8. ALKERAN [Suspect]
     Dates: start: 20060719
  9. FORTECORTIN [Concomitant]
     Dosage: 20 MG, UNK
     Route: 065
     Dates: start: 20060427, end: 20060430
  10. FORTECORTIN [Concomitant]
     Dosage: 20 MG, UNK
     Route: 065
     Dates: start: 20060511, end: 20060514
  11. CORTISONE ACETATE [Suspect]
     Route: 065

REACTIONS (28)
  - ACTINOMYCOSIS [None]
  - BLOOD CREATININE INCREASED [None]
  - BLOOD IMMUNOGLOBULIN A INCREASED [None]
  - BONE DISORDER [None]
  - CONDITION AGGRAVATED [None]
  - DENTAL ALVEOLAR ANOMALY [None]
  - DENTAL FISTULA [None]
  - DENTAL OPERATION [None]
  - GENERAL ANAESTHESIA [None]
  - HAEMOGLOBIN DECREASED [None]
  - HISTOLOGY ABNORMAL [None]
  - IMPAIRED HEALING [None]
  - JAW DISORDER [None]
  - LEUKOPENIA [None]
  - NASAL OPERATION [None]
  - OEDEMA MOUTH [None]
  - OPERATIVE HAEMORRHAGE [None]
  - OSTEITIS [None]
  - OSTEOMYELITIS CHRONIC [None]
  - OSTEONECROSIS [None]
  - OSTEOTOMY [None]
  - POST PROCEDURAL HAEMATOMA [None]
  - PRIMARY SEQUESTRUM [None]
  - PURULENT DISCHARGE [None]
  - SEQUESTRECTOMY [None]
  - SWELLING [None]
  - TOOTH LOSS [None]
  - X-RAY ABNORMAL [None]
